FAERS Safety Report 7546999-6 (Version None)
Quarter: 2011Q2

REPORT INFORMATION
  Report Type: 
  Country: None (occurrence: None)
  Receive Date: 20110614
  Receipt Date: 20110606
  Transmission Date: 20111010
  Serious: Yes (Other)
  Sender: FDA-Public Use
  Company Number: PHHY2011US50183

PATIENT
  Age: 33 Year
  Sex: Female

DRUGS (2)
  1. VERAPAMIL [Suspect]
     Dosage: 120 MG, TWICE DAILY
  2. FLUOXETINE HCL [Suspect]
     Dosage: 30 MG, DAILY

REACTIONS (2)
  - DEPRESSION [None]
  - DRUG EXPOSURE DURING PREGNANCY [None]
